FAERS Safety Report 21887765 (Version 1)
Quarter: 2023Q1

REPORT INFORMATION
  Report Type: Spontaneous
  Country: US (occurrence: US)
  Receive Date: 20230120
  Receipt Date: 20230120
  Transmission Date: 20230417
  Serious: Yes (Hospitalization, Other)
  Sender: FDA-Public Use
  Company Number: US-IPCA LABORATORIES LIMITED-IPC-2023-US-000074

PATIENT

DRUGS (3)
  1. WARFARIN [Interacting]
     Active Substance: WARFARIN
     Indication: Atrial fibrillation
     Dosage: UNK
     Route: 065
  2. ASPIRIN [Interacting]
     Active Substance: ASPIRIN
     Indication: Atrial fibrillation
     Dosage: UNK
     Route: 065
  3. GRAPEFRUIT JUICE [Interacting]
     Active Substance: GRAPEFRUIT JUICE
     Indication: Product used for unknown indication
     Dosage: UNK
     Route: 065

REACTIONS (13)
  - Compartment syndrome [Unknown]
  - Condition aggravated [Unknown]
  - Erythema [Unknown]
  - Swelling [Unknown]
  - Paraesthesia [Recovering/Resolving]
  - Anaemia [Unknown]
  - Anticoagulation drug level above therapeutic [Unknown]
  - Pain [Unknown]
  - Ecchymosis [Unknown]
  - Haematoma muscle [Unknown]
  - Peroneal nerve palsy [Not Recovered/Not Resolved]
  - Food interaction [Unknown]
  - Drug interaction [Unknown]
